FAERS Safety Report 10589313 (Version 3)
Quarter: 2015Q2

REPORT INFORMATION
  Report Type: Spontaneous
  Country: IT (occurrence: IT)
  Receive Date: 20141118
  Receipt Date: 20150428
  Transmission Date: 20150821
  Serious: Yes (Hospitalization)
  Sender: FDA-Public Use
  Company Number: IT-ROCHE-1491916

PATIENT
  Age: 81 Year
  Sex: Male

DRUGS (4)
  1. LEVACT (ITALY) [Suspect]
     Active Substance: BENDAMUSTINE HYDROCHLORIDE
     Indication: CHRONIC LYMPHOCYTIC LEUKAEMIA
     Dosage: 2.5 MG/ML POWDER FOR CONCENTRATE FOR SOLUTION
     Route: 041
     Dates: start: 20120625, end: 20130128
  2. TALAVIR [Concomitant]
     Active Substance: VALACYCLOVIR HYDROCHLORIDE
     Dosage: ^500 MG FILM-COATED TABLETS
     Route: 048
  3. MABTHERA [Suspect]
     Active Substance: RITUXIMAB
     Indication: CHRONIC LYMPHOCYTIC LEUKAEMIA
     Dosage: 1 VIAL OF 500 MG 50 ML
     Route: 041
     Dates: start: 20120325, end: 20130126
  4. BACTRIM [Concomitant]
     Active Substance: SULFAMETHOXAZOLE\TRIMETHOPRIM
     Dosage: 160 MG + 800 MG TABLETS^ 16 TABLETS
     Route: 048

REACTIONS (2)
  - Bone marrow failure [Recovering/Resolving]
  - Bronchitis [Recovering/Resolving]

NARRATIVE: CASE EVENT DATE: 20130128
